FAERS Safety Report 19619264 (Version 1)
Quarter: 2021Q3

REPORT INFORMATION
  Report Type: Spontaneous
  Country: US (occurrence: US)
  Receive Date: 20210728
  Receipt Date: 20210728
  Transmission Date: 20211014
  Serious: Yes (Hospitalization)
  Sender: FDA-Public Use
  Company Number: US-ROCHE-2697278

PATIENT
  Sex: Female

DRUGS (5)
  1. PROCHLORPERAZINE. [Concomitant]
     Active Substance: PROCHLORPERAZINE
  2. TUKYSA [Suspect]
     Active Substance: TUCATINIB
     Indication: BREAST CANCER FEMALE
     Route: 065
  3. XELODA [Suspect]
     Active Substance: CAPECITABINE
     Indication: BREAST CANCER FEMALE
     Route: 048
  4. OXYCODONE [Concomitant]
     Active Substance: OXYCODONE
  5. ONDANSETRON [Concomitant]
     Active Substance: ONDANSETRON

REACTIONS (8)
  - Nausea [Unknown]
  - Thrombosis [Unknown]
  - Vertebral column mass [Unknown]
  - Arthralgia [Unknown]
  - Fatigue [Unknown]
  - Neuralgia [Unknown]
  - Bone pain [Unknown]
  - Haemoptysis [Unknown]
